FAERS Safety Report 10769577 (Version 1)
Quarter: 2015Q1

REPORT INFORMATION
  Report Type: Spontaneous
  Country: BR (occurrence: BR)
  Receive Date: 20150206
  Receipt Date: 20150206
  Transmission Date: 20150721
  Serious: Yes (Other)
  Sender: FDA-Public Use
  Company Number: BR-PFIZER INC-2015041351

PATIENT
  Age: 66 Year
  Sex: Male
  Weight: 88 kg

DRUGS (1)
  1. XALATAN [Suspect]
     Active Substance: LATANOPROST
     Dosage: UNK
     Dates: start: 2010, end: 2013

REACTIONS (5)
  - Hypertension [Unknown]
  - Diabetes mellitus [Unknown]
  - Intraocular pressure increased [Unknown]
  - Spinal pain [Unknown]
  - Blood cholesterol increased [Unknown]
